FAERS Safety Report 12482899 (Version 1)
Quarter: 2016Q2

REPORT INFORMATION
  Report Type: Spontaneous
  Country: ES (occurrence: ES)
  Receive Date: 20160620
  Receipt Date: 20160620
  Transmission Date: 20160815
  Serious: Yes (Hospitalization, Other)
  Sender: FDA-Public Use
  Company Number: ALCN2016ES004082

PATIENT
  Age: 77 Year
  Sex: Female

DRUGS (3)
  1. DUROGESIC [Concomitant]
     Active Substance: FENTANYL
     Indication: OSTEOARTHRITIS
     Dosage: 1 DF, Q72H
     Route: 062
  2. AZILECT [Concomitant]
     Active Substance: RASAGILINE MESYLATE
     Indication: PARKINSON^S DISEASE
     Dosage: UNK
     Route: 048
     Dates: start: 20160106
  3. TOBRADEX [Suspect]
     Active Substance: DEXAMETHASONE\TOBRAMYCIN
     Indication: CATARACT OPERATION
     Dosage: UNK
     Route: 047
     Dates: start: 20151217, end: 20160106

REACTIONS (1)
  - Mania [Recovered/Resolved]

NARRATIVE: CASE EVENT DATE: 20160106
